FAERS Safety Report 13538585 (Version 1)
Quarter: 2017Q2

REPORT INFORMATION
  Report Type: Spontaneous
  Country: FR (occurrence: FR)
  Receive Date: 20170512
  Receipt Date: 20170512
  Transmission Date: 20170830
  Serious: Yes (Other)
  Sender: FDA-Public Use
  Company Number: FR-AMGEN-FRASP2017069580

PATIENT
  Age: 56 Year

DRUGS (9)
  1. XGEVA [Suspect]
     Active Substance: DENOSUMAB
     Indication: PRODUCT USED FOR UNKNOWN INDICATION
     Route: 065
  2. AROMASINE [Concomitant]
     Active Substance: EXEMESTANE
  3. TAXOTERE [Concomitant]
     Active Substance: DOCETAXEL
  4. NAVELBINE [Concomitant]
     Active Substance: VINORELBINE TARTRATE
  5. ERIBULIN [Concomitant]
     Active Substance: ERIBULIN
  6. ARIMIDEX [Concomitant]
     Active Substance: ANASTROZOLE
  7. ZOMETA [Concomitant]
     Active Substance: ZOLEDRONIC ACID
  8. XELODA [Concomitant]
     Active Substance: CAPECITABINE
  9. FASLODEX [Concomitant]
     Active Substance: FULVESTRANT

REACTIONS (1)
  - Osteonecrosis of jaw [Unknown]
